FAERS Safety Report 8795686 (Version 1)
Quarter: 2012Q4

REPORT INFORMATION
  Report Type: 
  Country: US (occurrence: US)
  Receive Date: 20120919
  Receipt Date: 20120919
  Transmission Date: 20130627
  Serious: No
  Sender: FDA-Public Use
  Company Number: US-B.I. PHARMACEUTICALS,INC./RIDGEFIELD-2012-BP-22626BP

PATIENT
  Age: 77 Year
  Sex: Male

DRUGS (2)
  1. JENTADUETO [Suspect]
     Indication: DIABETES MELLITUS
  2. LEVEMIR [Concomitant]
     Indication: DIABETES MELLITUS

REACTIONS (2)
  - Neuropathy peripheral [Unknown]
  - Pain [Unknown]
